FAERS Safety Report 6964416-1 (Version None)
Quarter: 2010Q3

REPORT INFORMATION
  Report Type: 
  Country: None (occurrence: None)
  Receive Date: 20100903
  Receipt Date: 20100824
  Transmission Date: 20110219
  Serious: Yes (Other)
  Sender: FDA-Public Use
  Company Number: AU-PFIZER INC-2010021699

PATIENT
  Age: 58 Year
  Sex: Female

DRUGS (2)
  1. CHAMPIX [Suspect]
     Indication: SMOKING CESSATION THERAPY
     Dosage: UNK
     Dates: start: 20091111, end: 20091201
  2. EFFEXOR XR [Interacting]
     Dosage: 75 MG, 1X/DAY
     Dates: start: 20010101

REACTIONS (8)
  - ABNORMAL DREAMS [None]
  - ANXIETY [None]
  - DEPRESSION [None]
  - DRUG INTERACTION [None]
  - FEELING ABNORMAL [None]
  - INSOMNIA [None]
  - NAUSEA [None]
  - TOBACCO WITHDRAWAL SYMPTOMS [None]
